FAERS Safety Report 4479597-1 (Version None)
Quarter: 2004Q4

REPORT INFORMATION
  Report Type: 
  Country: None (occurrence: None)
  Receive Date: 20041018
  Receipt Date: 20041005
  Transmission Date: 20050328
  Serious: Yes (Hospitalization)
  Sender: FDA-Public Use
  Company Number: 2004PK01671

PATIENT
  Age: 59 Year
  Sex: Male
  Weight: 130 kg

DRUGS (7)
  1. BELOC ZOK [Suspect]
     Indication: HYPERTENSION
     Dosage: 95 MG DAILY PO
     Route: 048
     Dates: start: 20040331
  2. DELIX [Suspect]
     Indication: HYPERTENSION
     Dosage: 5 MG DAILY PO
     Route: 048
     Dates: start: 20040402
  3. DIGITOXIN TAB [Concomitant]
  4. FALITHROM [Concomitant]
  5. INSULIN ACTRAPHANE HUMAN [Concomitant]
  6. PLAVIX [Concomitant]
  7. ATORVASTATIN CALCIUM [Concomitant]

REACTIONS (5)
  - ARRHYTHMIA [None]
  - ATRIAL FIBRILLATION [None]
  - DIZZINESS POSTURAL [None]
  - DRUG INTERACTION [None]
  - ELECTROCARDIOGRAM POOR R-WAVE PROGRESSION [None]
